FAERS Safety Report 9473457 (Version 1)
Quarter: 2013Q3

REPORT INFORMATION
  Report Type: Spontaneous
  Country: US (occurrence: US)
  Receive Date: 20130823
  Receipt Date: 20130823
  Transmission Date: 20140515
  Serious: Yes (Other)
  Sender: FDA-Public Use
  Company Number: US-BRISTOL-MYERS SQUIBB COMPANY-19010230

PATIENT
  Age: 66 Year
  Sex: Male
  Weight: 113.38 kg

DRUGS (2)
  1. SPRYCEL (CML) TABS 100 MG [Suspect]
     Indication: CHRONIC MYELOID LEUKAEMIA
     Dosage: LAST DOSE WAS IN MAY 2013
     Dates: start: 200906, end: 201305
  2. OXYCODONE [Concomitant]

REACTIONS (2)
  - Pericardial effusion [Recovering/Resolving]
  - Pleural effusion [Recovering/Resolving]
